FAERS Safety Report 17715901 (Version 2)
Quarter: 2020Q2

REPORT INFORMATION
  Report Type: Spontaneous
  Country: ES (occurrence: ES)
  Receive Date: 20200428
  Receipt Date: 20200507
  Transmission Date: 20200714
  Serious: Yes (Death)
  Sender: FDA-Public Use
  Company Number: ES-TEVA-2020-ES-1228878

PATIENT
  Age: 39 Year
  Sex: Male

DRUGS (10)
  1. AZITROMICINA (7019A) [Suspect]
     Active Substance: AZITHROMYCIN
     Indication: CORONAVIRUS INFECTION
     Dosage: 500 MG
     Route: 048
     Dates: start: 20200327, end: 20200330
  2. MIDAZOLAM (2256A) [Concomitant]
     Indication: SEDATION
     Dosage: 100 MG
     Route: 041
     Dates: start: 20200327, end: 20200409
  3. TOCILIZUMAB (8289A) [Concomitant]
     Active Substance: TOCILIZUMAB
     Indication: CORONAVIRUS INFECTION
     Route: 042
     Dates: start: 20200327, end: 20200327
  4. ENOXAPARINA SODICA (2482SO) [Concomitant]
     Active Substance: ENOXAPARIN SODIUM
     Route: 058
     Dates: start: 20200327, end: 20200409
  5. PROPOFOL (2373A) [Interacting]
     Active Substance: PROPOFOL
     Indication: SEDATION
     Route: 042
     Dates: start: 20200408, end: 20200409
  6. METOCLOPRAMIDA (1958A) [Interacting]
     Active Substance: METOCLOPRAMIDE HYDROCHLORIDE
     Dosage: 10 MG, METOCLOPRAMIDA (1958A)
     Route: 042
     Dates: start: 20200329, end: 20200409
  7. SALBUTAMOL (2297A) [Interacting]
     Active Substance: ALBUTEROL
     Dosage: 0.1 MG
     Route: 055
     Dates: start: 20200404, end: 20200409
  8. CEFOTAXIMA (3840A) [Concomitant]
     Active Substance: CEFOTAXIME SODIUM
     Indication: PNEUMONIA KLEBSIELLA
     Dosage: 4GRAM
     Route: 041
     Dates: start: 20200408, end: 20200409
  9. DOLQUINE 200 MG COMPRIMIDOS RECUBIERTOS, 30 COMPRIMIDOS [Interacting]
     Active Substance: HYDROXYCHLOROQUINE SULFATE
     Indication: CORONAVIRUS INFECTION
     Dosage: 400 MG, DOLQUINE 200 MG COMPRIMIDOS RECUBIERTOS, 30 COMPRIMIDOS
     Route: 048
     Dates: start: 20200327, end: 20200401
  10. IPRATROPIO BROMURO (1067BR) [Concomitant]
     Active Substance: IPRATROPIUM BROMIDE
     Dosage: 20 MCG
     Route: 055
     Dates: start: 20200404, end: 20200409

REACTIONS (3)
  - Electrocardiogram QT prolonged [Fatal]
  - Sudden death [Fatal]
  - Drug interaction [Unknown]

NARRATIVE: CASE EVENT DATE: 202004
